FAERS Safety Report 11989948 (Version 2)
Quarter: 2016Q1

REPORT INFORMATION
  Report Type: Spontaneous
  Country: US (occurrence: US)
  Receive Date: 20160202
  Receipt Date: 20160321
  Transmission Date: 20160526
  Serious: No
  Sender: FDA-Public Use
  Company Number: US-PFIZER INC-2016052498

PATIENT
  Age: 53 Year
  Sex: Male
  Weight: 72 kg

DRUGS (4)
  1. KLONOPIN [Concomitant]
     Active Substance: CLONAZEPAM
     Dosage: UNK
  2. DILANTIN [Suspect]
     Active Substance: PHENYTOIN
     Indication: EPILEPSY
     Dosage: 400 MG, DAILY
     Route: 048
  3. KLONOPIN [Concomitant]
     Active Substance: CLONAZEPAM
     Indication: AFRICAN TRYPANOSOMIASIS
     Dosage: 1 MG, UNK
  4. DILANTIN [Suspect]
     Active Substance: PHENYTOIN
     Indication: DIET FAILURE
     Dosage: 300 MG, 1X/DAY
     Route: 048

REACTIONS (10)
  - Night sweats [Unknown]
  - Pyrexia [Unknown]
  - Dermatitis contact [Recovered/Resolved]
  - Ear pruritus [Unknown]
  - Inadequate diet [Unknown]
  - Insomnia [Unknown]
  - Malaise [Unknown]
  - Skin exfoliation [Unknown]
  - Daydreaming [Unknown]
  - Photopsia [Unknown]
